FAERS Safety Report 7710778-7 (Version None)
Quarter: 2011Q3

REPORT INFORMATION
  Report Type: 
  Country: None (occurrence: None)
  Receive Date: 20110825
  Receipt Date: 20110725
  Transmission Date: 20111222
  Serious: No
  Sender: FDA-Public Use
  Company Number: US-BAYER-2011-066568

PATIENT
  Sex: Male
  Weight: 113 kg

DRUGS (1)
  1. ALEVE (CAPLET) [Suspect]
     Indication: ARTHRITIS
     Dosage: 2-3 DF, OTHER FREQUENCY
     Route: 048
     Dates: start: 20110722, end: 20110724

REACTIONS (2)
  - URTICARIA [None]
  - ARTHRITIS [None]
